FAERS Safety Report 5450437-7 (Version None)
Quarter: 2007Q3

REPORT INFORMATION
  Report Type: 
  Country: None (occurrence: None)
  Receive Date: 20070803
  Receipt Date: 20070601
  Transmission Date: 20080115
  Serious: No
  Sender: FDA-Public Use
  Company Number: 200615855BWH

PATIENT
  Age: 78 Year
  Sex: Male

DRUGS (9)
  1. NEXAVAR [Suspect]
     Indication: RENAL CELL CARCINOMA STAGE UNSPECIFIED
     Dosage: SEE IMAGE
     Route: 048
     Dates: start: 20060921, end: 20060924
  2. NEXAVAR [Suspect]
     Indication: RENAL CELL CARCINOMA STAGE UNSPECIFIED
     Dosage: SEE IMAGE
     Route: 048
     Dates: start: 20060901, end: 20061001
  3. NEXAVAR [Suspect]
     Indication: RENAL CELL CARCINOMA STAGE UNSPECIFIED
     Dosage: SEE IMAGE
     Route: 048
     Dates: start: 20061001
  4. NORVASC [Concomitant]
  5. BENICAR [Concomitant]
  6. SELENIUM SULFIDE [Concomitant]
  7. VITAMIN B [Concomitant]
  8. GARLIC TABLETS (NOS) [Concomitant]
  9. ASPIRIN [Concomitant]

REACTIONS (5)
  - BLOOD PRESSURE ABNORMAL [None]
  - DIARRHOEA [None]
  - DYSPHONIA [None]
  - MUSCLE SPASMS [None]
  - PAIN IN EXTREMITY [None]
